FAERS Safety Report 23490364 (Version 1)
Quarter: 2024Q1

REPORT INFORMATION
  Report Type: Spontaneous
  Country: US (occurrence: US)
  Receive Date: 20240206
  Receipt Date: 20240206
  Transmission Date: 20240410
  Serious: Yes (Hospitalization, Other)
  Sender: FDA-Public Use
  Company Number: US-TAKEDA-2024TUS009946

PATIENT
  Sex: Female
  Weight: 60 kg

DRUGS (1)
  1. VYVANSE [Suspect]
     Active Substance: LISDEXAMFETAMINE DIMESYLATE
     Indication: Depression
     Dosage: 60 MILLIGRAM, QD
     Route: 065

REACTIONS (3)
  - Drug dependence [Unknown]
  - Product availability issue [Unknown]
  - Product use issue [Unknown]
